FAERS Safety Report 5253861-0 (Version None)
Quarter: 2007Q1

REPORT INFORMATION
  Report Type: 
  Country: None (occurrence: None)
  Receive Date: 20070227
  Receipt Date: 20070215
  Transmission Date: 20070707
  Serious: Yes (Hospitalization, Other)
  Sender: FDA-Public Use
  Company Number: SPV1-2007-00651

PATIENT
  Sex: Male

DRUGS (3)
  1. EQUETRO [Suspect]
     Dosage: 200 MG 2XS DAILY, ORAL
     Route: 048
     Dates: start: 20070104, end: 20070108
  2. BLOOD PRESSURE MEDICATION [Concomitant]
  3. ANTIFUNGAL EAR DROPS [Suspect]

REACTIONS (8)
  - ASTHENIA [None]
  - BLOOD PRESSURE ABNORMAL [None]
  - DIARRHOEA [None]
  - DRUG DISPENSING ERROR [None]
  - DRUG PRESCRIBING ERROR [None]
  - GASTRIC HAEMORRHAGE [None]
  - VOMITING [None]
  - WEIGHT DECREASED [None]
